FAERS Safety Report 11988431 (Version 2)
Quarter: 2016Q1

REPORT INFORMATION
  Report Type: Spontaneous
  Country: DE (occurrence: DE)
  Receive Date: 20160202
  Receipt Date: 20160203
  Transmission Date: 20160526
  Serious: Yes (Hospitalization, Other)
  Sender: FDA-Public Use
  Company Number: DE-AMGEN-DEUSP2016009842

PATIENT
  Sex: Female
  Weight: 76 kg

DRUGS (13)
  1. METOBETA [Concomitant]
     Dosage: 50 MG, QD
     Dates: start: 201307
  2. RAMIPRIL. [Concomitant]
     Active Substance: RAMIPRIL
     Dosage: 5 MG, QD
     Dates: start: 201307
  3. FOLICOMBIN [Concomitant]
     Dosage: UNK UNK, QD
     Dates: start: 201307
  4. DUROGESIC [Concomitant]
     Active Substance: FENTANYL
     Dosage: 100 MUG, EVERY THREE DAYS
     Dates: start: 201307
  5. PANTOZOL [Concomitant]
     Active Substance: PANTOPRAZOLE SODIUM
     Dosage: 40 MG, QD
     Dates: start: 201307
  6. METFORMIN [Concomitant]
     Active Substance: METFORMIN HYDROCHLORIDE
     Dosage: UNK UNK, QD
     Dates: start: 201307
  7. EXEMESTAN [Concomitant]
     Active Substance: EXEMESTANE
     Indication: BREAST CANCER
     Dosage: 25 MG, QD
     Dates: start: 20130903
  8. LETROZOL [Concomitant]
     Active Substance: LETROZOLE
     Dosage: UNK
     Dates: start: 20120913, end: 201212
  9. FULVESTRANT [Concomitant]
     Active Substance: FULVESTRANT
     Dosage: UNK
     Dates: start: 201212, end: 201307
  10. ZOMETA [Concomitant]
     Active Substance: ZOLEDRONIC ACID
     Indication: PRODUCT USED FOR UNKNOWN INDICATION
     Dosage: 4 MG, QMO
     Dates: start: 20110706
  11. XGEVA [Suspect]
     Active Substance: DENOSUMAB
     Indication: METASTASES TO BONE
     Dosage: 120 MG, QMO
     Route: 065
     Dates: start: 20110706
  12. AFINITOR [Concomitant]
     Active Substance: EVEROLIMUS
     Indication: BREAST CANCER
     Dosage: 5 MG, QD
     Route: 065
     Dates: start: 20130903
  13. VOLTAREN [Concomitant]
     Active Substance: DICLOFENAC SODIUM
     Dosage: UNK UNK, QD
     Dates: start: 201307

REACTIONS (1)
  - Osteonecrosis of jaw [Not Recovered/Not Resolved]

NARRATIVE: CASE EVENT DATE: 20131127
